FAERS Safety Report 23237928 (Version 2)
Quarter: 2023Q4

REPORT INFORMATION
  Report Type: Report from Study
  Country: NL (occurrence: NL)
  Receive Date: 20231129
  Receipt Date: 20231130
  Transmission Date: 20240110
  Serious: Yes (Death)
  Sender: FDA-Public Use
  Company Number: NL-ABBVIE-5517107

PATIENT
  Age: 60 Year
  Sex: Female

DRUGS (13)
  1. CARBIDOPA\LEVODOPA [Suspect]
     Active Substance: CARBIDOPA\LEVODOPA
     Indication: Parkinson^s disease
     Dosage: MD: 8.0 ML, CD: 2.8ML/H, ED: 1.3ML, CND: 1.0ML/H, END:1.3ML?WENT TO 24 HOURS?J-TUBE
     Route: 050
     Dates: start: 20221012, end: 20221018
  2. CARBIDOPA\LEVODOPA [Suspect]
     Active Substance: CARBIDOPA\LEVODOPA
     Dosage: MD: 8.0 ML, CD: 3.5ML/H, ED: 1.3ML, CND: 2.5ML/H?REMAINS 24 HOURS?J-TUBE
     Route: 050
     Dates: start: 20230323
  3. CARBIDOPA\LEVODOPA [Suspect]
     Active Substance: CARBIDOPA\LEVODOPA
     Dosage: CND: 1.3ML/H, END:1.3ML?REMAINS 24 HOURS?J-TUBE
     Route: 050
     Dates: start: 20221018, end: 20230323
  4. CARBIDOPA\LEVODOPA [Suspect]
     Active Substance: CARBIDOPA\LEVODOPA
     Dosage: J-TUBE
     Route: 050
     Dates: start: 20211213
  5. LORAZEPAM [Concomitant]
     Active Substance: LORAZEPAM
     Indication: Product used for unknown indication
     Dosage: FORM STRENGTH: 1 MILLIGRAM?1X DAILY 1 AND WHEN NEEDED 4X DAILY 0.5
  6. CITALOPRAM [Concomitant]
     Active Substance: CITALOPRAM HYDROBROMIDE
     Indication: Anxiety disorder
     Dosage: FORM STRENGTH: 20 MILLIGRAM?1.5 DOSAGE FORM
  7. LOSEC [Concomitant]
     Active Substance: OMEPRAZOLE
     Indication: Product used for unknown indication
     Dosage: FORM STRENGTH: 40 MILLIGRAM
  8. POLYETHYLENE GLYCOLS [Concomitant]
     Active Substance: POLYETHYLENE GLYCOLS
     Indication: Product used for unknown indication
     Dosage: WHEN NEEDED
  9. NEUPRO [Concomitant]
     Active Substance: ROTIGOTINE
     Indication: Parkinson^s disease
     Dosage: FORM STRENGTH: 6 MILLIGRAM
  10. Magnesiumhydroxide teva [Concomitant]
     Indication: Product used for unknown indication
     Dosage: TIME INTERVAL: 0.33333333 DAYS
  11. ENTACAPONE [Concomitant]
     Active Substance: ENTACAPONE
     Indication: Parkinson^s disease
     Dosage: TIME INTERVAL: 0.33333333 DAYS: FORM STRENGTH: 200 MILLIGRAM
     Dates: start: 20211213
  12. METOPROLOL [Concomitant]
     Active Substance: METOPROLOL
     Indication: Atrial fibrillation
     Dosage: 1/4 TABLET?FORM STRENGTH: 50 MILLIGRAM
  13. SINEMET [Concomitant]
     Active Substance: CARBIDOPA\LEVODOPA
     Indication: Parkinson^s disease
     Dosage: 50/12.5MG?1X DAILY 1; 6X DAILY 2
     Dates: end: 20211213

REACTIONS (1)
  - Euthanasia [Fatal]
